FAERS Safety Report 23942270 (Version 4)
Quarter: 2024Q3

REPORT INFORMATION
  Report Type: Spontaneous
  Country: NZ (occurrence: NZ)
  Receive Date: 20240605
  Receipt Date: 20240801
  Transmission Date: 20241017
  Serious: Yes (Hospitalization, Other)
  Sender: MYLAN
  Company Number: NZ-MYLANLABS-2024M1050448

PATIENT
  Sex: Male
  Weight: 84.7 kg

DRUGS (7)
  1. CLOZARIL [Suspect]
     Active Substance: CLOZAPINE
     Indication: Schizophrenia
     Dosage: UNK
     Route: 048
     Dates: start: 20240516
  2. CLOZARIL [Suspect]
     Active Substance: CLOZAPINE
     Indication: Psychotic disorder
     Dosage: 200 MILLIGRAM, PM (LAST DAILY DOES WAS 200 MG AT NIGHT)
     Route: 048
     Dates: start: 20240517, end: 20240604
  3. QUETIAPINE [Concomitant]
     Active Substance: QUETIAPINE
     Indication: Insomnia
     Dosage: 50 MILLIGRAM, QD (NIGHT)
     Route: 048
     Dates: start: 20230405
  4. ESCITALOPRAM [Concomitant]
     Active Substance: ESCITALOPRAM OXALATE
     Indication: Depressed mood
     Dosage: 10 MILLIGRAM, QD (MORNING)
     Route: 048
     Dates: start: 20231108
  5. DOCUSATE SODIUM\SENNOSIDES A AND B [Concomitant]
     Active Substance: DOCUSATE SODIUM\SENNOSIDES A AND B
     Indication: Constipation
     Dosage: 2 DOSAGE FORM, QD (NIGHT)
     Route: 048
     Dates: start: 20240517, end: 20240613
  6. LITHIUM [Concomitant]
     Active Substance: LITHIUM
     Indication: Bipolar disorder
     Dosage: 750 MILLIGRAM, QD (NIGHT)
     Route: 048
     Dates: start: 20230627
  7. ALBUTEROL [Concomitant]
     Active Substance: ALBUTEROL
     Indication: Asthma
     Dosage: 2 PUFFS PRN
     Route: 055
     Dates: start: 20220805

REACTIONS (7)
  - Hospitalisation [Recovered/Resolved]
  - Troponin increased [Recovered/Resolved]
  - White blood cell count increased [Recovered/Resolved]
  - C-reactive protein increased [Recovered/Resolved]
  - Neutrophil count increased [Recovered/Resolved]
  - Myocarditis [Recovered/Resolved]
  - Asthma [Recovered/Resolved]
